FAERS Safety Report 10854394 (Version 1)
Quarter: 2015Q1

REPORT INFORMATION
  Report Type: Spontaneous
  Country: JP (occurrence: JP)
  Receive Date: 20150223
  Receipt Date: 20150223
  Transmission Date: 20150721
  Serious: Yes (Other)
  Sender: FDA-Public Use
  Company Number: JP-ELI_LILLY_AND_COMPANY-JP201502005693

PATIENT
  Sex: Female

DRUGS (1)
  1. EVISTA [Suspect]
     Active Substance: RALOXIFENE HYDROCHLORIDE
     Indication: PRODUCT USED FOR UNKNOWN INDICATION
     Route: 048

REACTIONS (5)
  - Faeces hard [Recovered/Resolved]
  - Weight decreased [Not Recovered/Not Resolved]
  - Fall [Recovered/Resolved]
  - Contusion [Unknown]
  - Spinal fracture [Unknown]

NARRATIVE: CASE EVENT DATE: 201406
